FAERS Safety Report 8913003 (Version 1)
Quarter: 2012Q4

REPORT INFORMATION
  Report Type: Spontaneous
  Country: US (occurrence: None)
  Receive Date: 20121114
  Receipt Date: 20121114
  Transmission Date: 20130627
  Serious: Yes (Other)
  Sender: FDA-Public Use
  Company Number: None

PATIENT
  Age: 54 Year
  Sex: Female
  Weight: 74.5 kg

DRUGS (1)
  1. TEMODAR 200MG/M2 [Suspect]
     Indication: GLIOSARCOMA
     Route: 048
     Dates: start: 20120815

REACTIONS (1)
  - No adverse event [None]
